FAERS Safety Report 4433566-6 (Version None)
Quarter: 2004Q3

REPORT INFORMATION
  Report Type: 
  Country: None (occurrence: None)
  Receive Date: 20040825
  Receipt Date: 20040825
  Transmission Date: 20050211
  Serious: Yes (Death, Hospitalization)
  Sender: FDA-Public Use
  Company Number: None

PATIENT
  Age: 69 Year
  Sex: Female
  Weight: 71.2147 kg

DRUGS (2)
  1. TEMOZOLOMIDE [Suspect]
     Indication: ANAPLASTIC ASTROCYTOMA
     Dosage: 350 MG PO QD X 5 DAYS OF THE FIRST WK OF RADIATION
     Route: 048
     Dates: start: 20040719, end: 20040723
  2. RADIATION THERAPY [Concomitant]

REACTIONS (7)
  - ABDOMINAL PAIN [None]
  - HEADACHE [None]
  - LEUKOPENIA [None]
  - NAUSEA [None]
  - NEUTROPENIA [None]
  - PSEUDOMONAL BACTERAEMIA [None]
  - VOMITING [None]
